FAERS Safety Report 11116811 (Version 2)
Quarter: 2015Q2

REPORT INFORMATION
  Report Type: Spontaneous
  Country: JP (occurrence: JP)
  Receive Date: 20150515
  Receipt Date: 20150521
  Transmission Date: 20150821
  Serious: Yes (Other)
  Sender: FDA-Public Use
  Company Number: JP-PFIZER INC-2015107881

PATIENT
  Age: 74 Year
  Sex: Male
  Weight: 54.5 kg

DRUGS (8)
  1. BENZALIN [Concomitant]
     Active Substance: NITRAZEPAM
     Indication: INSOMNIA
     Dosage: 5 MG, 1X/DAY
     Route: 048
     Dates: start: 20141101
  2. LYRICA [Suspect]
     Active Substance: PREGABALIN
     Indication: PAIN IN EXTREMITY
  3. AVOLVE [Concomitant]
     Active Substance: DUTASTERIDE
     Indication: BENIGN PROSTATIC HYPERPLASIA
     Dosage: 0.5 MG, 1X/DAY
     Route: 048
     Dates: start: 20140526
  4. PURSENNID [Concomitant]
     Active Substance: SENNOSIDES A AND B
     Indication: CONSTIPATION
     Dosage: UNK, 1X/DAY
     Route: 048
     Dates: start: 20140905
  5. URIEF [Concomitant]
     Active Substance: SILODOSIN
     Indication: DYSURIA
     Dosage: UNK, 1X/DAY
     Route: 048
     Dates: start: 20140526
  6. FEXOFENADINE HYDROCHLORIDE. [Concomitant]
     Active Substance: FEXOFENADINE HYDROCHLORIDE
     Indication: PRURITUS
     Dosage: 60 MG, 2X/DAY
     Route: 048
     Dates: start: 20140905
  7. LANSOPRAZOLE OD [Concomitant]
     Active Substance: LANSOPRAZOLE
     Indication: CANCER SURGERY
     Dosage: 15 MG, 1X/DAY
     Route: 048
     Dates: start: 20140127
  8. LYRICA [Suspect]
     Active Substance: PREGABALIN
     Indication: NEURALGIA
     Dosage: 150 MG, 2X/DAY (MORNING AND EVENING)
     Route: 048
     Dates: start: 20140127, end: 20150325

REACTIONS (8)
  - Dementia [Not Recovered/Not Resolved]
  - Hyperglycaemia [Unknown]
  - Depressed level of consciousness [Recovered/Resolved]
  - Polyneuropathy [Not Recovered/Not Resolved]
  - Hypoglycaemia [Recovered/Resolved]
  - Peripheral coldness [Unknown]
  - Urethral stenosis [Not Recovered/Not Resolved]
  - Altered state of consciousness [Recovered/Resolved]

NARRATIVE: CASE EVENT DATE: 201406
